FAERS Safety Report 9557177 (Version 2)
Quarter: 2014Q2

REPORT INFORMATION
  Report Type: Spontaneous
  Country: US (occurrence: US)
  Receive Date: 20130926
  Receipt Date: 20140602
  Transmission Date: 20141212
  Serious: Yes (Hospitalization, Other)
  Sender: FDA-Public Use
  Company Number: US-SANOFI-AVENTIS-2013SA093643

PATIENT
  Age: 52 Year
  Sex: Male
  Weight: 121 kg

DRUGS (10)
  1. PLAVIX [Suspect]
     Indication: PRODUCT USED FOR UNKNOWN INDICATION
     Route: 065
     Dates: end: 200612
  2. GABAPENTIN [Suspect]
     Indication: PAIN IN EXTREMITY
     Route: 065
     Dates: start: 2005, end: 201206
  3. GABAPENTIN [Suspect]
     Indication: PAIN IN EXTREMITY
     Route: 065
     Dates: start: 2005, end: 201206
  4. NEXIUM [Concomitant]
     Indication: BARRETT^S OESOPHAGUS
     Route: 065
  5. PRISTIQ [Concomitant]
     Indication: DEPRESSION
     Route: 065
  6. PRAVASTATIN [Concomitant]
     Indication: BLOOD CHOLESTEROL
     Route: 065
  7. CENTRUM SILVER [Concomitant]
     Indication: VITAMIN SUPPLEMENTATION
     Route: 065
  8. FISH OIL [Concomitant]
  9. CODEINE [Concomitant]
     Indication: PAIN IN EXTREMITY
     Route: 065
     Dates: start: 201204
  10. MORPHINE [Concomitant]
     Indication: PAIN IN EXTREMITY
     Route: 065
     Dates: start: 201204

REACTIONS (7)
  - Arthropathy [Unknown]
  - Myocardial infarction [Unknown]
  - Mitral valve disease [Unknown]
  - Salivary gland neoplasm [Unknown]
  - Diabetes mellitus [Unknown]
  - Epistaxis [Unknown]
  - Hypertension [Unknown]
